FAERS Safety Report 7959553-9 (Version None)
Quarter: 2011Q4

REPORT INFORMATION
  Report Type: 
  Country: None (occurrence: None)
  Receive Date: 20111206
  Receipt Date: 20111128
  Transmission Date: 20120403
  Serious: Yes (Death, Other)
  Sender: FDA-Public Use
  Company Number: GB-ROCHE-1017430

PATIENT

DRUGS (3)
  1. EPIRUBICIN HYDROCHLORIDE [Suspect]
     Indication: NEOPLASM MALIGNANT
  2. XELODA [Suspect]
     Indication: NEOPLASM MALIGNANT
     Route: 048
  3. CISPLATIN [Suspect]
     Indication: NEOPLASM MALIGNANT

REACTIONS (3)
  - DEEP VEIN THROMBOSIS [None]
  - EMBOLISM VENOUS [None]
  - PULMONARY EMBOLISM [None]
